FAERS Safety Report 5427849-0 (Version None)
Quarter: 2007Q3

REPORT INFORMATION
  Report Type: 
  Country: None (occurrence: None)
  Receive Date: 20070828
  Receipt Date: 20070820
  Transmission Date: 20080115
  Serious: Yes (Death)
  Sender: FDA-Public Use
  Company Number: US-GENENTECH-246238

PATIENT
  Sex: Male

DRUGS (7)
  1. RANIBIZUMAB [Suspect]
     Indication: MACULAR DEGENERATION
     Route: 031
     Dates: start: 20060606
  2. SELENIUM SULFIDE [Concomitant]
     Indication: PROSTATE CANCER
     Dates: start: 20020101
  3. VITAMIN B6 [Concomitant]
     Indication: NEUROPATHY PERIPHERAL
  4. COUMADIN [Concomitant]
     Indication: PERIPHERAL VASCULAR DISORDER
     Dates: start: 20000101
  5. ZOCOR [Concomitant]
     Indication: BLOOD CHOLESTEROL INCREASED
  6. ATACAND [Concomitant]
     Indication: HYPERTENSION
  7. TRENTAL [Concomitant]
     Indication: PERIPHERAL VASCULAR DISORDER
     Dates: start: 20010101

REACTIONS (1)
  - DEATH [None]
